FAERS Safety Report 6200355-1 (Version None)
Quarter: 2009Q2

REPORT INFORMATION
  Report Type: 
  Country: None (occurrence: None)
  Receive Date: 20090522
  Receipt Date: 20090515
  Transmission Date: 20091009
  Serious: Yes (Other)
  Sender: FDA-Public Use
  Company Number: ZA-MEDIMMUNE-MEDI-0008394

PATIENT

DRUGS (1)
  1. SYNAGIS [Suspect]

REACTIONS (2)
  - PYREXIA [None]
  - RESTLESSNESS [None]
